FAERS Safety Report 9125656 (Version 2)
Quarter: 2013Q3

REPORT INFORMATION
  Report Type: Spontaneous
  Country: US (occurrence: US)
  Receive Date: 20130117
  Receipt Date: 20130701
  Transmission Date: 20140515
  Serious: Yes (Hospitalization, Other)
  Sender: FDA-Public Use
  Company Number: US-PFIZER INC-2013018167

PATIENT
  Age: 49 Year
  Sex: Female
  Weight: 86.17 kg

DRUGS (4)
  1. GEODON [Suspect]
     Indication: BIPOLAR DISORDER
     Dosage: UNK
  2. FOLIC ACID [Concomitant]
     Dosage: 1 MG, UNK
  3. PROZAC [Concomitant]
     Dosage: 10 MG, UNK
  4. NEURONTIN [Concomitant]
     Dosage: UNK

REACTIONS (2)
  - Myocardial infarction [Unknown]
  - Malaise [Unknown]
